FAERS Safety Report 8808821 (Version 1)
Quarter: 2012Q4

REPORT INFORMATION
  Report Type: 
  Country: US (occurrence: US)
  Receive Date: 20120926
  Receipt Date: 20120926
  Transmission Date: 20130627
  Serious: Yes (Other)
  Sender: FDA-Public Use
  Company Number: US-PFIZER INC-2012236875

PATIENT
  Age: 36 Year
  Sex: Male
  Weight: 92.97 kg

DRUGS (2)
  1. PRISTIQ [Suspect]
     Indication: DEPRESSION
     Dosage: 50 mg, 1x/day
     Route: 048
     Dates: start: 200910, end: 201110
  2. PRISTIQ [Suspect]
     Dosage: UNK
     Route: 048

REACTIONS (5)
  - Mental impairment [Not Recovered/Not Resolved]
  - Disturbance in attention [Recovered/Resolved]
  - Lethargy [Recovered/Resolved]
  - Malaise [Recovered/Resolved]
  - Thinking abnormal [Recovered/Resolved]
